FAERS Safety Report 17803108 (Version 1)
Quarter: 2020Q2

REPORT INFORMATION
  Report Type: Spontaneous
  Country: FR (occurrence: FR)
  Receive Date: 20200519
  Receipt Date: 20200519
  Transmission Date: 20200714
  Serious: Yes (Hospitalization)
  Sender: FDA-Public Use
  Company Number: FR-ACCORD-182456

PATIENT
  Age: 40 Year
  Sex: Male

DRUGS (8)
  1. SUFENTA [Concomitant]
     Active Substance: SUFENTANIL CITRATE
     Route: 042
  2. CISATRACURIUM/CISATRACURIUM BESILATE [Suspect]
     Active Substance: CISATRACURIUM BESYLATE
     Indication: ANAESTHESIA
     Route: 042
     Dates: start: 20190827, end: 20190827
  3. CELOCURINE [Concomitant]
     Active Substance: SUCCINYLCHOLINE
     Route: 042
  4. FLAGYL [Concomitant]
     Active Substance: METRONIDAZOLE\METRONIDAZOLE HYDROCHLORIDE
     Dosage: 0.5 PERCENT SOLUTION FOR INJECTION
     Route: 042
  5. CEFTRIAXONE. [Concomitant]
     Active Substance: CEFTRIAXONE
     Route: 042
  6. PROPOFOL. [Concomitant]
     Active Substance: PROPOFOL
     Route: 042
  7. KETAMINE [Suspect]
     Active Substance: KETAMINE
     Indication: ANAESTHESIA
     Route: 042
     Dates: start: 20190827, end: 20190827
  8. SEVORANE [Concomitant]
     Active Substance: SEVOFLURANE

REACTIONS (3)
  - Anaphylactic reaction [Recovered/Resolved]
  - Erythema [Recovered/Resolved]
  - Bronchospasm [Recovered/Resolved]

NARRATIVE: CASE EVENT DATE: 20190827
